FAERS Safety Report 9475720 (Version 1)
Quarter: 2013Q3

REPORT INFORMATION
  Report Type: Spontaneous
  Country: US (occurrence: None)
  Receive Date: 20130822
  Receipt Date: 20130822
  Transmission Date: 20140515
  Serious: No
  Sender: FDA-Public Use
  Company Number: None

PATIENT
  Age: 16 Year
  Sex: Male
  Weight: 106.8 kg

DRUGS (6)
  1. CYTARABINE [Suspect]
     Dates: end: 20130724
  2. DAUNORUBICIN [Suspect]
     Dates: end: 20130808
  3. METHOTREXATE [Suspect]
     Dates: end: 20130731
  4. PEG-L-ASPARAGINASE (PEGASPARGASE, ONCOSPAR) [Suspect]
     Dates: end: 20130727
  5. PREDNISONE [Suspect]
     Dates: end: 20130815
  6. VINCRISTINE SULFATE [Suspect]
     Dates: end: 20130815

REACTIONS (2)
  - Bilirubin conjugated increased [None]
  - Gamma-glutamyltransferase increased [None]
